FAERS Safety Report 8961713 (Version 3)
Quarter: 2013Q1

REPORT INFORMATION
  Report Type: Spontaneous
  Country: FR (occurrence: FR)
  Receive Date: 20121213
  Receipt Date: 20130228
  Transmission Date: 20140127
  Serious: No
  Sender: FDA-Public Use
  Company Number: FR-JNJFOC-20121202857

PATIENT
  Age: 53 Year
  Sex: Male
  Weight: 70 kg

DRUGS (2)
  1. DUROGESIC [Suspect]
     Indication: CANCER PAIN
     Route: 062
     Dates: start: 20121128
  2. CHEMOTHERAPY [Concomitant]
     Indication: TONGUE CANCER METASTATIC

REACTIONS (3)
  - Drug prescribing error [Unknown]
  - Off label use [Unknown]
  - No therapeutic response [Unknown]
